FAERS Safety Report 9659921 (Version 1)
Quarter: 2013Q4

REPORT INFORMATION
  Report Type: Spontaneous
  Country: US (occurrence: US)
  Receive Date: 20131031
  Receipt Date: 20131031
  Transmission Date: 20140711
  Serious: Yes (Hospitalization)
  Sender: FDA-Public Use
  Company Number: US-B.I. PHARMACEUTICALS,INC./RIDGEFIELD-2013-BI-34375BP

PATIENT
  Age: 46 Year
  Sex: Male
  Weight: 43 kg

DRUGS (3)
  1. SPIRIVA [Suspect]
     Indication: CHRONIC OBSTRUCTIVE PULMONARY DISEASE
     Dosage: 18 MCG
     Route: 055
     Dates: start: 2011
  2. PRO AIR [Concomitant]
     Dosage: INHALATION SPRAY
     Route: 055
  3. ADVAIR [Concomitant]
     Dosage: INHALATION SPRAY
     Route: 055

REACTIONS (5)
  - Loss of consciousness [Recovered/Resolved]
  - Heart rate decreased [Recovered/Resolved]
  - Confusional state [Recovered/Resolved]
  - Facial bones fracture [Not Recovered/Not Resolved]
  - Fall [Recovered/Resolved]
